FAERS Safety Report 24963351 (Version 1)
Quarter: 2025Q1

REPORT INFORMATION
  Report Type: Spontaneous
  Country: CA (occurrence: CA)
  Receive Date: 20250213
  Receipt Date: 20250213
  Transmission Date: 20250409
  Serious: Yes (Other)
  Sender: PFIZER
  Company Number: CA-PFIZER INC-202500032684

PATIENT
  Age: 43 Year
  Sex: Female
  Weight: 74 kg

DRUGS (8)
  1. RUXIENCE [Suspect]
     Active Substance: RITUXIMAB-PVVR
     Indication: Systemic lupus erythematosus
     Route: 042
     Dates: start: 20240618
  2. BISOPROLOL [Concomitant]
     Active Substance: BISOPROLOL
  3. CANDESARTAN [Concomitant]
     Active Substance: CANDESARTAN
  4. CELLCEPT [Concomitant]
     Active Substance: MYCOPHENOLATE MOFETIL
  5. HYDROXYCHLOROQUINE [Concomitant]
     Active Substance: HYDROXYCHLOROQUINE
  6. IMURAN [Concomitant]
     Active Substance: AZATHIOPRINE
  7. PREDNISONE [Concomitant]
     Active Substance: PREDNISONE
  8. ASCORBIC ACID\ERGOCALCIFEROL\NIACINAMIDE\RETINOL\RIBOFLAVIN\THIAMINE [Concomitant]
     Active Substance: ASCORBIC ACID\ERGOCALCIFEROL\NIACINAMIDE\RETINOL\RIBOFLAVIN\THIAMINE

REACTIONS (5)
  - Pericarditis [Unknown]
  - Hepatic enzyme increased [Unknown]
  - Back pain [Recovered/Resolved]
  - Pleuritic pain [Recovered/Resolved]
  - Hepatic steatosis [Unknown]
